FAERS Safety Report 7918005 (Version 2)
Quarter: 2012Q4

REPORT INFORMATION
  Report Type: 
  Country: US (occurrence: US)
  Receive Date: 20110428
  Receipt Date: 20121004
  Transmission Date: 20130627
  Serious: No
  Sender: FDA-Public Use
  Company Number: US-ASTRAZENECA-2011SE01995

PATIENT
  Age: 50 Year
  Sex: Female

DRUGS (6)
  1. ZOMIG [Suspect]
     Indication: MIGRAINE
     Route: 045
  2. ZOMIG [Suspect]
     Indication: MIGRAINE
     Dosage: 6-8 SAMPLES A MONTH
     Route: 048
     Dates: start: 2010
  3. ZOMIG [Suspect]
     Indication: MIGRAINE
     Route: 048
  4. AMITRIPTYLINE HCL [Concomitant]
  5. CYMBALTA [Concomitant]
  6. NEXIUM [Concomitant]

REACTIONS (4)
  - Stress [Unknown]
  - Gastrooesophageal reflux disease [Unknown]
  - Headache [Unknown]
  - Drug dose omission [Unknown]
